FAERS Safety Report 19369580 (Version 12)
Quarter: 2022Q2

REPORT INFORMATION
  Report Type: Spontaneous
  Country: US (occurrence: US)
  Receive Date: 20210603
  Receipt Date: 20220524
  Transmission Date: 20220720
  Serious: Yes (Other)
  Sender: FDA-Public Use
  Company Number: US-GLAXOSMITHKLINE-US2021AMR117768

PATIENT

DRUGS (5)
  1. ZEJULA [Suspect]
     Active Substance: NIRAPARIB
     Indication: Ovarian cancer
     Dosage: 300 MG, QD
     Dates: start: 20210601
  2. ZEJULA [Suspect]
     Active Substance: NIRAPARIB
     Dosage: 300 MG, QD
     Route: 048
     Dates: start: 20210621
  3. ZEJULA [Suspect]
     Active Substance: NIRAPARIB
     Dosage: UNK (MODIFIED DOSE)
  4. ZEJULA [Suspect]
     Active Substance: NIRAPARIB
     Dosage: 200 MG, QD
  5. ZEJULA [Suspect]
     Active Substance: NIRAPARIB
     Dosage: 100 MG, QD

REACTIONS (17)
  - Recurrent cancer [Unknown]
  - Fatigue [Not Recovered/Not Resolved]
  - Anxiety [Unknown]
  - Insomnia [Unknown]
  - Asthenia [Unknown]
  - Myalgia [Not Recovered/Not Resolved]
  - Platelet count decreased [Not Recovered/Not Resolved]
  - Constipation [Not Recovered/Not Resolved]
  - Dry mouth [Unknown]
  - Epistaxis [Unknown]
  - Bowel movement irregularity [Unknown]
  - Decreased activity [Unknown]
  - Red blood cell count decreased [Unknown]
  - Muscular weakness [Unknown]
  - Ocular discomfort [Unknown]
  - Vitamin D deficiency [Unknown]
  - Keratoacanthoma [Unknown]

NARRATIVE: CASE EVENT DATE: 20210601
